FAERS Safety Report 19702940 (Version 1)
Quarter: 2021Q3

REPORT INFORMATION
  Report Type: Report from Study
  Country: US (occurrence: US)
  Receive Date: 20210816
  Receipt Date: 20210816
  Transmission Date: 20211014
  Serious: Yes (Hospitalization)
  Sender: FDA-Public Use
  Company Number: US-SAREPTA THERAPEUTICS INC.-SRP2021-001598

PATIENT
  Sex: Male

DRUGS (1)
  1. ETEPLIRSEN [Suspect]
     Active Substance: ETEPLIRSEN
     Indication: PRODUCT USED FOR UNKNOWN INDICATION
     Dosage: 2100, WEEKLY

REACTIONS (3)
  - Blood urine present [Unknown]
  - Hypotension [Unknown]
  - Weight decreased [Unknown]
